FAERS Safety Report 23795297 (Version 2)
Quarter: 2024Q2

REPORT INFORMATION
  Report Type: Spontaneous
  Country: US (occurrence: US)
  Receive Date: 20240429
  Receipt Date: 20240502
  Transmission Date: 20240715
  Serious: No
  Sender: FDA-Public Use
  Company Number: US-BRISTOL-MYERS SQUIBB COMPANY-2024-066111

PATIENT
  Age: 47 Year
  Sex: Female

DRUGS (1)
  1. SPRYCEL [Suspect]
     Active Substance: DASATINIB
     Indication: Chronic myeloid leukaemia
     Route: 048
     Dates: start: 202208

REACTIONS (9)
  - Fatigue [Unknown]
  - Anxiety [Unknown]
  - Depression [Unknown]
  - Decreased appetite [Unknown]
  - Arthralgia [Unknown]
  - Headache [Unknown]
  - Visual impairment [Unknown]
  - Varicose vein [Unknown]
  - Cognitive disorder [Unknown]
